FAERS Safety Report 21075072 (Version 2)
Quarter: 2022Q3

REPORT INFORMATION
  Report Type: Spontaneous
  Country: TR (occurrence: TR)
  Receive Date: 20220713
  Receipt Date: 20220730
  Transmission Date: 20221026
  Serious: Yes (Hospitalization, Other)
  Sender: FDA-Public Use
  Company Number: TR-MLMSERVICE-2022070136479451

PATIENT
  Age: 26 Year
  Sex: Female

DRUGS (1)
  1. DOCETAXEL [Suspect]
     Active Substance: DOCETAXEL
     Indication: Invasive breast carcinoma
     Dosage: EVERY 3 WEEKS, INTERVAL : TOTAL
     Dates: start: 202007, end: 202010

REACTIONS (2)
  - Dermatomyositis [Recovering/Resolving]
  - Recall phenomenon [Recovering/Resolving]

NARRATIVE: CASE EVENT DATE: 20201001
